FAERS Safety Report 11752518 (Version 3)
Quarter: 2016Q1

REPORT INFORMATION
  Report Type: Report from Study
  Country: US (occurrence: US)
  Receive Date: 20151119
  Receipt Date: 20160104
  Transmission Date: 20160525
  Serious: No
  Sender: FDA-Public Use
  Company Number: US-AMGEN-USASL2015118670

PATIENT
  Age: 48 Year
  Sex: Female

DRUGS (1)
  1. ENBREL [Suspect]
     Active Substance: ETANERCEPT
     Indication: PSORIATIC ARTHROPATHY
     Dosage: 50 MG, ONCE WEEKLY
     Route: 065
     Dates: start: 20151026

REACTIONS (10)
  - Pyrexia [Recovering/Resolving]
  - Cough [Unknown]
  - Oral herpes [Recovered/Resolved]
  - Lymphadenopathy [Recovered/Resolved]
  - Injection site erythema [Unknown]
  - Injection site discolouration [Unknown]
  - Nasopharyngitis [Unknown]
  - Injection site reaction [Unknown]
  - Dysphonia [Unknown]
  - Paranasal sinus hypersecretion [Unknown]

NARRATIVE: CASE EVENT DATE: 2015
